FAERS Safety Report 5894728-4 (Version None)
Quarter: 2008Q3

REPORT INFORMATION
  Report Type: 
  Country: None (occurrence: None)
  Receive Date: 20080924
  Receipt Date: 20080702
  Transmission Date: 20090109
  Serious: No
  Sender: FDA-Public Use
  Company Number: US-ASTRAZENECA-2008UW10782

PATIENT
  Age: 454 Month
  Sex: Male

DRUGS (11)
  1. SEROQUEL [Suspect]
     Route: 048
     Dates: start: 20041001, end: 20060501
  2. SEROQUEL [Suspect]
     Route: 048
     Dates: start: 20060501, end: 20080301
  3. SEROQUEL [Suspect]
     Route: 048
     Dates: start: 20080301, end: 20080501
  4. SEROQUEL [Suspect]
     Route: 048
     Dates: start: 20080501
  5. PROZAC [Concomitant]
     Dates: start: 19970501
  6. PROZAC [Concomitant]
  7. PROMETHAZINE [Concomitant]
     Dates: start: 20051101
  8. LORATADINE [Concomitant]
     Dates: start: 20070911
  9. LOVASTATIN [Concomitant]
     Dates: start: 20070911, end: 20071218
  10. LOVASTATIN [Concomitant]
     Dates: start: 20071219
  11. SIMVASTATIN [Concomitant]
     Dates: start: 20080604

REACTIONS (11)
  - ALOPECIA [None]
  - DEPRESSION [None]
  - DIZZINESS [None]
  - HYPOTHYROIDISM [None]
  - IMPAIRED HEALING [None]
  - LETHARGY [None]
  - MENTAL IMPAIRMENT [None]
  - NAUSEA [None]
  - OEDEMA [None]
  - SKIN DISORDER [None]
  - WEIGHT INCREASED [None]
